FAERS Safety Report 21470796 (Version 1)
Quarter: 2022Q4

REPORT INFORMATION
  Report Type: Report from Study
  Country: US (occurrence: US)
  Receive Date: 20221018
  Receipt Date: 20221018
  Transmission Date: 20230113
  Serious: No
  Sender: FDA-Public Use
  Company Number: US-ABBVIE-4147682

PATIENT
  Age: 64 Year
  Sex: Male

DRUGS (1)
  1. IMBRUVICA [Suspect]
     Active Substance: IBRUTINIB
     Indication: Chronic lymphocytic leukaemia (in remission)
     Route: 048

REACTIONS (5)
  - Hypophagia [Not Recovered/Not Resolved]
  - Insomnia [Not Recovered/Not Resolved]
  - Weight decreased [Not Recovered/Not Resolved]
  - Renal disorder [Unknown]
  - Pollakiuria [Unknown]

NARRATIVE: CASE EVENT DATE: 20220501
